FAERS Safety Report 5634149-2 (Version None)
Quarter: 2008Q1

REPORT INFORMATION
  Report Type: 
  Country: None (occurrence: None)
  Receive Date: 20080221
  Receipt Date: 20080221
  Transmission Date: 20080703
  Serious: Yes (Other)
  Sender: FDA-Public Use
  Company Number: None

PATIENT
  Age: 45 Year
  Sex: Female

DRUGS (1)
  1. CHLORAPREP [Suspect]

REACTIONS (3)
  - APPLICATION SITE REACTION [None]
  - BLISTER [None]
  - ERYTHEMA [None]
